FAERS Safety Report 7402132-2 (Version None)
Quarter: 2011Q1

REPORT INFORMATION
  Report Type: 
  Country: None (occurrence: None)
  Receive Date: 20110330
  Receipt Date: 20110316
  Transmission Date: 20110831
  Serious: Yes (Other)
  Sender: FDA-Public Use
  Company Number: 2011AP000434

PATIENT
  Age: 37 Year
  Sex: Female

DRUGS (16)
  1. LAMOTRIGINE [Suspect]
     Indication: FRONTAL LOBE EPILEPSY
     Dosage: 500 MG; QD, 450 MG; QD
  2. ACETAZOLAMIDE SODIUM (ACETAZOLAMIDE SODIUM) [Concomitant]
  3. CARBAMAZEPINE [Concomitant]
  4. GABAPENTIN [Concomitant]
  5. OXCARBAZEPINE [Concomitant]
  6. RUFINAMIDE (RUFINAMIDE) [Concomitant]
  7. VALPROIC ACID [Concomitant]
  8. PHENYTOIN [Suspect]
     Indication: FRONTAL LOBE EPILEPSY
     Dosage: 375 MG; QD, 325 MG; QD
  9. CLONAZEPAM [Concomitant]
  10. LEVETIRACETAM [Concomitant]
  11. PHENOBARBITAL (PHENOBARBITAL) [Suspect]
  12. ZONISAMIDE [Concomitant]
  13. FELBAMATE (FELBAMATE) [Concomitant]
  14. LACOSAMIDE [Suspect]
     Indication: FRONTAL LOBE EPILEPSY
     Dosage: 200 MG
  15. TIAGABINE HCL [Concomitant]
  16. TOPIRAMATE ITOPIRAMATE) [Concomitant]

REACTIONS (8)
  - CONVULSION [None]
  - DRUG INTERACTION [None]
  - ANTICONVULSANT DRUG LEVEL INCREASED [None]
  - ANTICONVULSANT DRUG LEVEL DECREASED [None]
  - BALANCE DISORDER [None]
  - DIZZINESS [None]
  - NEUROTOXICITY [None]
  - DIPLOPIA [None]
